FAERS Safety Report 23254170 (Version 2)
Quarter: 2023Q4

REPORT INFORMATION
  Report Type: Spontaneous
  Country: MX (occurrence: MX)
  Receive Date: 20231202
  Receipt Date: 20231207
  Transmission Date: 20240109
  Serious: Yes (Other)
  Sender: FDA-Public Use
  Company Number: MX-002147023-NVSC2023MX255462

PATIENT
  Sex: Female
  Weight: 70 kg

DRUGS (4)
  1. HYDROCHLOROTHIAZIDE\VALSARTAN [Suspect]
     Active Substance: HYDROCHLOROTHIAZIDE\VALSARTAN
     Indication: Hypertension
     Dosage: 160 MG
     Route: 065
  2. SAXENDA [Suspect]
     Active Substance: LIRAGLUTIDE
     Indication: Insulin resistance
     Dosage: 1 DOSAGE FORM, QD
     Route: 065
     Dates: start: 202308
  3. SAXENDA [Suspect]
     Active Substance: LIRAGLUTIDE
     Indication: Hepatic steatosis
  4. SAXENDA [Suspect]
     Active Substance: LIRAGLUTIDE
     Indication: Weight increased

REACTIONS (6)
  - Hepatic steatosis [Unknown]
  - Insulin resistance [Unknown]
  - Blood glucose increased [Unknown]
  - Weight loss poor [Unknown]
  - Gastritis [Unknown]
  - Drug ineffective [Unknown]
